FAERS Safety Report 9468594 (Version 2)
Quarter: 2013Q3

REPORT INFORMATION
  Report Type: Not Available
  Country: IT (occurrence: IT)
  Receive Date: 20130821
  Receipt Date: 20130821
  Transmission Date: 20140515
  Serious: Yes (Life-Threatening, Hospitalization)
  Sender: FDA-Public Use
  Company Number: IT-NAPPMUNDI-GBR-2013-0015123

PATIENT
  Age: 61 Year
  Sex: Female

DRUGS (4)
  1. OXYCONTIN [Suspect]
     Indication: SUICIDE ATTEMPT
     Dosage: 20 MG/ML, UNK
     Route: 048
     Dates: start: 20130705, end: 20130705
  2. ORAMORPH [Suspect]
     Indication: SUICIDE ATTEMPT
     Dosage: 20 MG/ML, UNK
     Route: 048
     Dates: start: 20130705, end: 20130705
  3. PRAZENE [Suspect]
     Indication: SUICIDE ATTEMPT
     Dosage: 15 MG/ML, UNK
     Route: 048
     Dates: start: 20130705, end: 20130705
  4. EUTIROX [Concomitant]
     Indication: HYPOTHYROIDISM
     Route: 048

REACTIONS (4)
  - Drug abuse [Unknown]
  - Suicide attempt [Unknown]
  - Coma [Unknown]
  - Vomiting projectile [Unknown]
